FAERS Safety Report 7533786-8 (Version None)
Quarter: 2011Q2

REPORT INFORMATION
  Report Type: 
  Country: None (occurrence: None)
  Receive Date: 20110608
  Receipt Date: 20110525
  Transmission Date: 20111010
  Serious: Yes (Hospitalization)
  Sender: FDA-Public Use
  Company Number: US-UCBSA-021494

PATIENT
  Sex: Male
  Weight: 46 kg

DRUGS (12)
  1. CERTOLIZUMAB PEGOL [Suspect]
     Indication: CROHN'S DISEASE
     Route: 058
     Dates: start: 20100122
  2. PREDNISONE [Concomitant]
     Dosage: DAILY FOR 1 WEEK
     Dates: start: 20100420
  3. VANCOMYCIN [Concomitant]
  4. FLAGYL [Concomitant]
  5. IBUPROFEN [Concomitant]
     Indication: CROHN'S DISEASE
  6. ZOSYN [Concomitant]
  7. CIPROFLOXACIN [Concomitant]
  8. PREDNISONE [Concomitant]
     Indication: CROHN'S DISEASE
     Dates: start: 20020701, end: 20020901
  9. PREDNISONE [Concomitant]
     Dates: start: 20090601, end: 20090811
  10. HEPARIN [Concomitant]
     Route: 058
  11. PEPCID [Concomitant]
  12. CYMBALTA [Concomitant]

REACTIONS (5)
  - ILEOSTOMY [None]
  - ABDOMINAL ABSCESS [None]
  - COLON FISTULA REPAIR [None]
  - CAECECTOMY [None]
  - ILEOSTOMY CLOSURE [None]
